FAERS Safety Report 8321200-4 (Version None)
Quarter: 2012Q2

REPORT INFORMATION
  Report Type: 
  Country: None (occurrence: None)
  Receive Date: 20120430
  Receipt Date: 20120419
  Transmission Date: 20120825
  Serious: Yes (Hospitalization, Other)
  Sender: FDA-Public Use
  Company Number: US-JNJFOC-20100807781

PATIENT
  Sex: Female

DRUGS (2)
  1. LEVAQUIN [Suspect]
     Indication: SINUSITIS
     Route: 048
     Dates: start: 20070401, end: 20070601
  2. PREDNISONE [Suspect]
     Indication: SINUSITIS
     Route: 048
     Dates: start: 20000101, end: 20100101

REACTIONS (2)
  - TENDON RUPTURE [None]
  - ARTHROPATHY [None]
